FAERS Safety Report 16224987 (Version 1)
Quarter: 2019Q2

REPORT INFORMATION
  Report Type: Spontaneous
  Country: US (occurrence: US)
  Receive Date: 20190422
  Receipt Date: 20190422
  Transmission Date: 20190711
  Serious: No
  Sender: FDA-Public Use
  Company Number: US-TEVA-2019-US-1032735

PATIENT
  Age: 66 Year
  Sex: Female

DRUGS (1)
  1. ANASTROZOLE TABLETS [Suspect]
     Active Substance: ANASTROZOLE
     Indication: BREAST CANCER
     Dates: start: 20180901, end: 20190227

REACTIONS (4)
  - Pyrexia [Not Recovered/Not Resolved]
  - Peripheral swelling [Not Recovered/Not Resolved]
  - Pain in extremity [Not Recovered/Not Resolved]
  - Arthralgia [Not Recovered/Not Resolved]

NARRATIVE: CASE EVENT DATE: 20190126
